FAERS Safety Report 10597751 (Version 5)
Quarter: 2015Q2

REPORT INFORMATION
  Report Type: Report from Study
  Country: JP (occurrence: JP)
  Receive Date: 20141121
  Receipt Date: 20150610
  Transmission Date: 20150821
  Serious: Yes (Hospitalization, Other)
  Sender: FDA-Public Use
  Company Number: JP-INCYTE CORPORATION-2014IN003281

PATIENT
  Age: 71 Year
  Sex: Male

DRUGS (1)
  1. JAKAFI [Suspect]
     Active Substance: RUXOLITINIB
     Indication: MYELOFIBROSIS
     Dosage: 5 MG, BID
     Route: 048
     Dates: start: 20140929, end: 20141105

REACTIONS (8)
  - Zygomycosis [Unknown]
  - Anaemia [Recovering/Resolving]
  - Renal disorder [Recovered/Resolved]
  - Computerised tomogram thorax abnormal [Not Recovered/Not Resolved]
  - Pyrexia [Recovered/Resolved]
  - Lung infection [Unknown]
  - Pleural effusion [Unknown]
  - Aspergillus infection [Recovering/Resolving]

NARRATIVE: CASE EVENT DATE: 20141020
